FAERS Safety Report 8240706-X (Version None)
Quarter: 2012Q1

REPORT INFORMATION
  Report Type: 
  Country: None (occurrence: None)
  Receive Date: 20120314
  Receipt Date: 20120125
  Transmission Date: 20120608
  Serious: Yes (Other)
  Sender: FDA-Public Use
  Company Number: PHHY2011US49505

PATIENT
  Age: 40 Year
  Sex: Male

DRUGS (1)
  1. EXTAVIA [Suspect]
     Indication: MULTIPLE SCLEROSIS
     Dosage: 0.25 MG, QOD, SUBCUTANEOUS
     Route: 058
     Dates: start: 20090101

REACTIONS (5)
  - INJECTION SITE SWELLING [None]
  - PLATELET COUNT DECREASED [None]
  - GAIT DISTURBANCE [None]
  - INJECTION SITE PAIN [None]
  - URINARY TRACT INFECTION [None]
